FAERS Safety Report 5262484-9 (Version None)
Quarter: 2007Q1

REPORT INFORMATION
  Report Type: 
  Country: None (occurrence: None)
  Receive Date: 20070312
  Receipt Date: 20070302
  Transmission Date: 20070707
  Serious: Yes (Hospitalization)
  Sender: FDA-Public Use
  Company Number: 2007AP01406

PATIENT
  Age: 41 Year
  Sex: Female

DRUGS (1)
  1. XYLOCAINE [Suspect]
     Indication: SKIN TEST
     Route: 023
     Dates: start: 20070227, end: 20070227

REACTIONS (1)
  - SHOCK [None]
